FAERS Safety Report 6502612-8 (Version None)
Quarter: 2009Q4

REPORT INFORMATION
  Report Type: 
  Country: None (occurrence: None)
  Receive Date: 20091127
  Receipt Date: 20091022
  Transmission Date: 20100525
  Serious: Yes (Other)
  Sender: FDA-Public Use
  Company Number: 002202

PATIENT

DRUGS (6)
  1. LACOSAMIDE [Suspect]
     Indication: CONVULSION
     Dosage: (50 MG BID ORAL), (100 MG BID ORAL), (ORAL)
     Route: 048
     Dates: start: 20090101, end: 20090101
  2. LACOSAMIDE [Suspect]
     Indication: CONVULSION
     Dosage: (50 MG BID ORAL), (100 MG BID ORAL), (ORAL)
     Route: 048
     Dates: start: 20090101, end: 20090101
  3. LACOSAMIDE [Suspect]
     Indication: CONVULSION
     Dosage: (50 MG BID ORAL), (100 MG BID ORAL), (ORAL)
     Route: 048
     Dates: start: 20090101
  4. CARBATROL [Concomitant]
  5. TOPAMAX [Concomitant]
  6. KEPPRA [Concomitant]

REACTIONS (3)
  - ATAXIA [None]
  - DIZZINESS [None]
  - VISION BLURRED [None]
